FAERS Safety Report 17225986 (Version 1)
Quarter: 2020Q1

REPORT INFORMATION
  Report Type: Spontaneous
  Country: SE (occurrence: SE)
  Receive Date: 20200102
  Receipt Date: 20200102
  Transmission Date: 20200409
  Serious: Yes (Life-Threatening, Hospitalization)
  Sender: FDA-Public Use
  Company Number: SE-BAUSCH-BL-2019-066571

PATIENT
  Age: 82 Year
  Sex: Male

DRUGS (4)
  1. DICLOFENAC [Suspect]
     Active Substance: DICLOFENAC
     Indication: INFECTION
     Route: 065
  2. DICLOFENAC [Suspect]
     Active Substance: DICLOFENAC
     Indication: ARTHRITIS
     Route: 048
     Dates: start: 20191125, end: 20191206
  3. DICLOFENAC [Suspect]
     Active Substance: DICLOFENAC
     Route: 048
     Dates: start: 20191125, end: 20191206
  4. XARELTO [Concomitant]
     Active Substance: RIVAROXABAN
     Indication: PRODUCT USED FOR UNKNOWN INDICATION

REACTIONS (2)
  - Gastric ulcer perforation [Not Recovered/Not Resolved]
  - Blood creatine increased [Not Recovered/Not Resolved]

NARRATIVE: CASE EVENT DATE: 20191206
